FAERS Safety Report 9037927 (Version 5)
Quarter: 2013Q2

REPORT INFORMATION
  Report Type: Spontaneous
  Country: US (occurrence: US)
  Receive Date: 20130129
  Receipt Date: 20130507
  Transmission Date: 20140414
  Serious: Yes (Hospitalization, Other)
  Sender: FDA-Public Use
  Company Number: US-JNJFOC-20130111480

PATIENT
  Age: 70 Year
  Sex: Male
  Weight: 78.02 kg

DRUGS (23)
  1. XARELTO [Suspect]
     Indication: CEREBROVASCULAR ACCIDENT PROPHYLAXIS
     Route: 048
     Dates: start: 20130103
  2. XARELTO [Suspect]
     Indication: ATRIAL FIBRILLATION
     Route: 048
     Dates: start: 20130103
  3. ECOTRIN [Suspect]
     Indication: CARDIAC DISORDER
     Route: 048
     Dates: end: 20120401
  4. ECOTRIN [Suspect]
     Indication: ATRIAL FIBRILLATION
     Route: 048
     Dates: end: 20120401
  5. ECONAZOLE NITRATE [Concomitant]
     Indication: DERMATITIS CONTACT
     Dosage: AS REQUIRED
     Route: 065
  6. FISH OIL [Concomitant]
     Indication: CARDIAC DISORDER
     Route: 048
     Dates: end: 20120322
  7. FISH OIL [Concomitant]
     Indication: MEDICAL DIET
     Route: 048
     Dates: end: 20120322
  8. RYTHMOL [Concomitant]
     Indication: ATRIAL FIBRILLATION
     Route: 048
     Dates: end: 20130103
  9. RYTHMOL [Concomitant]
     Indication: ATRIAL FIBRILLATION
     Route: 048
  10. RYTHMOL [Concomitant]
     Indication: ATRIAL FIBRILLATION
     Route: 048
     Dates: start: 20130103
  11. CRESTOR [Concomitant]
     Indication: BLOOD CHOLESTEROL INCREASED
     Route: 048
  12. VIBRAMYCIN [Concomitant]
     Indication: ROSACEA
     Route: 048
     Dates: start: 20120328
  13. MULTIPLE  VITAMIN [Concomitant]
     Indication: ROUTINE HEALTH MAINTENANCE
     Route: 048
     Dates: end: 20130322
  14. MULTIPLE  VITAMIN [Concomitant]
     Indication: MEDICAL DIET
     Route: 048
     Dates: end: 20130322
  15. CALCIUM MAGNESIUM [Concomitant]
     Indication: ROUTINE HEALTH MAINTENANCE
     Dosage: 500 MG/250 MG
     Route: 048
  16. CALCIUM MAGNESIUM [Concomitant]
     Indication: MEDICAL DIET
     Dosage: 500 MG/250 MG
     Route: 048
  17. VITAMIN D [Concomitant]
     Indication: ROUTINE HEALTH MAINTENANCE
     Route: 048
  18. VITAMIN D [Concomitant]
     Indication: MEDICAL DIET
     Route: 048
  19. NORITATE [Concomitant]
     Indication: ROSACEA
     Route: 065
  20. DESONIDE [Concomitant]
     Route: 061
  21. OMEGA 3 FATTY ACID [Concomitant]
     Route: 048
     Dates: end: 20120322
  22. PRINIVIL [Concomitant]
     Route: 048
  23. ZESTRIL [Concomitant]
     Route: 048

REACTIONS (2)
  - Platelet count decreased [Not Recovered/Not Resolved]
  - Epistaxis [Not Recovered/Not Resolved]
